FAERS Safety Report 8235428-5 (Version None)
Quarter: 2012Q1

REPORT INFORMATION
  Report Type: 
  Country: None (occurrence: None)
  Receive Date: 20120322
  Receipt Date: 20120307
  Transmission Date: 20120608
  Serious: Yes (Hospitalization, Other)
  Sender: FDA-Public Use
  Company Number: CIP09002992

PATIENT
  Age: 53 Year
  Sex: Female

DRUGS (14)
  1. EFFEXOR XR [Concomitant]
  2. MAGNESIUM (MAGNESIUM) [Concomitant]
  3. FOSAMAX [Suspect]
     Indication: OSTEOPOROSIS
     Route: 048
     Dates: start: 20031101
  4. NEUPOGEN [Concomitant]
  5. ROCEPHIN [Concomitant]
  6. ACTONEL [Suspect]
     Indication: OSTEOPOROSIS
     Dosage: 35 MG ONCE WEEKLY, ORAL
     Route: 048
     Dates: start: 20061201, end: 20070901
  7. ZOMETA [Suspect]
     Indication: OSTEOPOROSIS
     Dosage: 4 MG ONCE, INTRAVENOUS
     Route: 042
     Dates: start: 20060224, end: 20070614
  8. FENTANYL [Concomitant]
  9. PREVACID [Concomitant]
  10. CARBIDOPA AND LEVODOPA (CARBIDOPA, LEVODOPA) [Concomitant]
  11. TARCEVA   /01611401/ (ERLOTINIB) [Concomitant]
  12. ERGOCALCIFEROL [Concomitant]
  13. CARAFATE [Concomitant]
  14. ARANESP [Concomitant]

REACTIONS (26)
  - TENDERNESS [None]
  - ORAL CAVITY FISTULA [None]
  - OSTEOMYELITIS CHRONIC [None]
  - OSTEOMYELITIS BACTERIAL [None]
  - MASTOIDITIS [None]
  - FACIAL ASYMMETRY [None]
  - JAW FRACTURE [None]
  - IMPAIRED HEALING [None]
  - NECK MASS [None]
  - PURULENCE [None]
  - ENTEROBACTER INFECTION [None]
  - PAIN IN JAW [None]
  - OSTEONECROSIS OF JAW [None]
  - ORAL TORUS [None]
  - ABSCESS NECK [None]
  - ORAL PAIN [None]
  - JAW DISORDER [None]
  - STOMATITIS [None]
  - WEIGHT DECREASED [None]
  - CELLULITIS [None]
  - ERYTHEMA [None]
  - OSTEOMYELITIS ACUTE [None]
  - TOOTH EXTRACTION [None]
  - DYSPHAGIA [None]
  - LOCALISED OEDEMA [None]
  - PATHOLOGICAL FRACTURE [None]
